FAERS Safety Report 7541128-7 (Version None)
Quarter: 2011Q2

REPORT INFORMATION
  Report Type: 
  Country: None (occurrence: None)
  Receive Date: 20110610
  Receipt Date: 20110603
  Transmission Date: 20111010
  Serious: Yes (Other)
  Sender: FDA-Public Use
  Company Number: DE-ABBOTT-10P-062-0619918-00

PATIENT
  Sex: Female
  Weight: 57 kg

DRUGS (12)
  1. SULFASALAZINE [Suspect]
     Indication: ANKYLOSING SPONDYLITIS
  2. ETANERCEPT [Suspect]
     Indication: SPONDYLITIS
     Dates: start: 20090122, end: 20091214
  3. CELEBREX [Concomitant]
     Indication: PRODUCT USED FOR UNKNOWN INDICATION
  4. INFLIXIMAB [Suspect]
     Indication: ANKYLOSING SPONDYLITIS
  5. SULFASALAZINE [Suspect]
     Indication: SPONDYLITIS
     Route: 048
     Dates: start: 20080611, end: 20090122
  6. ACTONEL [Concomitant]
     Indication: PRODUCT USED FOR UNKNOWN INDICATION
  7. HUMIRA [Suspect]
     Indication: SPONDYLITIS
     Route: 058
     Dates: start: 20070927, end: 20080611
  8. ETANERCEPT [Suspect]
     Indication: ANKYLOSING SPONDYLITIS
  9. MAGNESIUM SULFATE [Concomitant]
     Indication: PRODUCT USED FOR UNKNOWN INDICATION
  10. HUMIRA [Suspect]
     Indication: ANKYLOSING SPONDYLITIS
  11. INFLIXIMAB [Suspect]
     Indication: SPONDYLITIS
     Route: 042
     Dates: start: 20070327, end: 20070927
  12. CALCIMAGON [Concomitant]
     Indication: PRODUCT USED FOR UNKNOWN INDICATION

REACTIONS (2)
  - CARDIOMEGALY [None]
  - PERICARDIAL EFFUSION [None]
